FAERS Safety Report 5592779-0 (Version None)
Quarter: 2008Q1

REPORT INFORMATION
  Report Type: 
  Country: None (occurrence: None)
  Receive Date: 20080114
  Receipt Date: 20080108
  Transmission Date: 20080703
  Serious: Yes (Death, Other)
  Sender: FDA-Public Use
  Company Number: 163-20785-07110995

PATIENT
  Age: 47 Year
  Sex: Female

DRUGS (1)
  1. THALOMID (THALIDOMIDE) (100 MIILLIGRAM, CAPSULES) [Suspect]
     Indication: MULTIPLE MYELOMA
     Dosage: 100, 1 IN 1 D, ORAL
     Route: 048
     Dates: start: 20050623, end: 20061201

REACTIONS (2)
  - FALL [None]
  - SUBDURAL HAEMATOMA [None]
